FAERS Safety Report 5700232-6 (Version None)
Quarter: 2008Q2

REPORT INFORMATION
  Report Type: 
  Country: None (occurrence: None)
  Receive Date: 20080410
  Receipt Date: 20080328
  Transmission Date: 20081010
  Serious: Yes (Hospitalization, Other)
  Sender: FDA-Public Use
  Company Number: US-ELI_LILLY_AND_COMPANY-US200803001662

PATIENT
  Age: 18 Year
  Sex: Male

DRUGS (5)
  1. STRATTERA [Suspect]
     Indication: TOURETTE'S DISORDER
     Dosage: 25 MG, UNK
     Dates: start: 20070901
  2. STRATTERA [Suspect]
     Dosage: 40 MG, UNK
  3. STRATTERA [Suspect]
     Dosage: 60 MG, UNK
  4. STRATTERA [Suspect]
     Dosage: 40 MG, UNK
  5. CELEXA [Concomitant]
     Indication: TOURETTE'S DISORDER

REACTIONS (9)
  - AGGRESSION [None]
  - ANGER [None]
  - CRYING [None]
  - CYANOSIS [None]
  - HYPOAESTHESIA [None]
  - MOOD ALTERED [None]
  - PARAESTHESIA [None]
  - PERIPHERAL COLDNESS [None]
  - THROMBOSIS [None]
